FAERS Safety Report 8871775 (Version 1)
Quarter: 2012Q4

REPORT INFORMATION
  Report Type: 
  Country: US (occurrence: US)
  Receive Date: 20121026
  Receipt Date: 20121026
  Transmission Date: 20130627
  Serious: No
  Sender: FDA-Public Use
  Company Number: US-AMGEN-USASP2012048686

PATIENT
  Sex: Male

DRUGS (7)
  1. ENBREL [Suspect]
     Indication: PRODUCT USED FOR UNKNOWN INDICATION
     Dosage: 50 mg, qwk
     Route: 058
  2. HUMALOG [Concomitant]
     Dosage: 100/ml
  3. METHOTREXATE [Concomitant]
     Dosage: 2.5 mg, UNK
  4. PREDNISONE [Concomitant]
     Dosage: 1 mg, UNK
  5. LISINOPRIL [Concomitant]
     Dosage: 2.5 mg, UNK
  6. FOLIC ACID [Concomitant]
     Dosage: 1 mg, UNK
  7. HYDROCHLOROTH [Concomitant]
     Dosage: 12.5 mg, UNK

REACTIONS (1)
  - Therapeutic response decreased [Unknown]
